FAERS Safety Report 12013000 (Version 1)
Quarter: 2016Q1

REPORT INFORMATION
  Report Type: Spontaneous
  Country: US (occurrence: US)
  Receive Date: 20160205
  Receipt Date: 20160205
  Transmission Date: 20160526
  Serious: No
  Sender: FDA-Public Use
  Company Number: US-NOVELLABS-2015-US-000065

PATIENT
  Age: 73 Year
  Sex: Female
  Weight: 86.18 kg

DRUGS (2)
  1. GABAPENTIN 300MG [Concomitant]
     Active Substance: GABAPENTIN
     Dosage: 1 CAP TWICE A DAY + 2 AT HS
     Route: 048
  2. PHENELZINE SULFATE. [Suspect]
     Active Substance: PHENELZINE SULFATE
     Dosage: 1 TABLET, THREE TIMES A DAY,
     Route: 048
     Dates: start: 20150618

REACTIONS (1)
  - Dizziness [Unknown]

NARRATIVE: CASE EVENT DATE: 20150618
